FAERS Safety Report 5831246-3 (Version None)
Quarter: 2008Q3

REPORT INFORMATION
  Report Type: 
  Country: None (occurrence: None)
  Receive Date: 20080801
  Receipt Date: 20080725
  Transmission Date: 20090109
  Serious: Yes (Life-Threatening, Other)
  Sender: FDA-Public Use
  Company Number: HQWYE626624JUN04

PATIENT
  Sex: Male
  Weight: 10.3 kg

DRUGS (2)
  1. BENEFIX [Suspect]
     Indication: FACTOR IX DEFICIENCY
     Dosage: 500 IU TO 1000 IU (ON DEMAND)
     Route: 042
     Dates: start: 20040316, end: 20040618
  2. BENEFIX [Suspect]
     Dosage: PROPHYLAXIS
     Route: 042
     Dates: start: 20050401

REACTIONS (2)
  - ANTI FACTOR IX ANTIBODY POSITIVE [None]
  - HYPERSENSITIVITY [None]
